FAERS Safety Report 5802715-7 (Version None)
Quarter: 2008Q2

REPORT INFORMATION
  Report Type: 
  Country: None (occurrence: None)
  Receive Date: 20080627
  Receipt Date: 20070917
  Transmission Date: 20081010
  Serious: Yes (Other)
  Sender: FDA-Public Use
  Company Number: 2007-04233

PATIENT
  Age: 82 Year
  Sex: Female

DRUGS (1)
  1. INFED [Suspect]
     Dosage: 2-3ML OF 25MG/50ML NS (1-1.5MG) INTRAVENOUS
     Route: 042
     Dates: start: 20070917, end: 20070917

REACTIONS (4)
  - ANAPHYLACTIC REACTION [None]
  - BACK PAIN [None]
  - FEELING HOT [None]
  - HYPERHIDROSIS [None]
